FAERS Safety Report 4714228-4 (Version None)
Quarter: 2005Q2

REPORT INFORMATION
  Report Type: 
  Country: None (occurrence: None)
  Receive Date: 20050630
  Receipt Date: 20040727
  Transmission Date: 20051028
  Serious: Yes (Other)
  Sender: FDA-Public Use
  Company Number: 357050

PATIENT
  Age: 34 Year
  Sex: Female

DRUGS (2)
  1. KLONOPIN [Suspect]
     Indication: PANIC DISORDER
     Dosage: 2 MG DAILY ORAL
     Route: 048
     Dates: start: 20000615
  2. EFFEXOR [Concomitant]

REACTIONS (6)
  - DEPRESSION [None]
  - DRUG WITHDRAWAL SYNDROME [None]
  - NIGHT SWEATS [None]
  - PANIC ATTACK [None]
  - POSTPARTUM DEPRESSION [None]
  - SUICIDAL IDEATION [None]
